FAERS Safety Report 6473161-0 (Version None)
Quarter: 2009Q4

REPORT INFORMATION
  Report Type: 
  Country: None (occurrence: None)
  Receive Date: 20091204
  Receipt Date: 20080715
  Transmission Date: 20100525
  Serious: Yes (Hospitalization)
  Sender: FDA-Public Use
  Company Number: US-ELI_LILLY_AND_COMPANY-US200806004702

PATIENT
  Sex: Female

DRUGS (5)
  1. BYETTA [Suspect]
     Indication: TYPE 2 DIABETES MELLITUS
     Dosage: 5 UG, 2/D
     Route: 058
     Dates: start: 20070601, end: 20071201
  2. BYETTA [Suspect]
     Dosage: 10 UG, 2/D
     Route: 058
     Dates: start: 20071201
  3. METFORMIN HCL [Concomitant]
     Dosage: 1000 MG, 2/D
  4. LOTREL [Concomitant]
     Indication: HYPERTENSION
  5. CRESTOR [Concomitant]
     Indication: BLOOD CHOLESTEROL

REACTIONS (3)
  - CHEST DISCOMFORT [None]
  - DEHYDRATION [None]
  - GASTROENTERITIS VIRAL [None]
